FAERS Safety Report 20139995 (Version 3)
Quarter: 2021Q4

REPORT INFORMATION
  Report Type: Spontaneous
  Country: CN (occurrence: CN)
  Receive Date: 20211202
  Receipt Date: 20211220
  Transmission Date: 20220304
  Serious: Yes (Other)
  Sender: FDA-Public Use
  Company Number: CN-SA-SAC20211130000140

PATIENT
  Age: 55 Year
  Sex: Male

DRUGS (1)
  1. LANTUS SOLOSTAR [Suspect]
     Active Substance: INSULIN GLARGINE
     Indication: Diabetes mellitus
     Dosage: 20 IU, QD
     Route: 065
     Dates: start: 2009

REACTIONS (8)
  - Coma [Unknown]
  - Suspected counterfeit product [Unknown]
  - Dyspnoea [Unknown]
  - Poor quality sleep [Unknown]
  - Insomnia [Unknown]
  - Chest discomfort [Unknown]
  - Pruritus [Unknown]
  - Adverse drug reaction [Unknown]
